FAERS Safety Report 19198405 (Version 2)
Quarter: 2021Q2

REPORT INFORMATION
  Report Type: Spontaneous
  Country: CN (occurrence: CN)
  Receive Date: 20210430
  Receipt Date: 20210521
  Transmission Date: 20210717
  Serious: Yes (Other)
  Sender: FDA-Public Use
  Company Number: CN-BIOGEN-2021BI01005719

PATIENT
  Age: 1 Year
  Sex: Female
  Weight: 6.3 kg

DRUGS (1)
  1. SPINRAZA [Suspect]
     Active Substance: NUSINERSEN
     Indication: SPINAL MUSCULAR ATROPHY
     Route: 037
     Dates: start: 20210401

REACTIONS (7)
  - Dysplasia [Unknown]
  - Spinal deformity [Unknown]
  - Pneumonia [Unknown]
  - Gastric haemorrhage [Recovered/Resolved]
  - Atelectasis [Unknown]
  - Thrombocytopenia [Unknown]
  - Pyrexia [Recovered/Resolved]

NARRATIVE: CASE EVENT DATE: 20210401
